FAERS Safety Report 7593414-2 (Version None)
Quarter: 2011Q2

REPORT INFORMATION
  Report Type: 
  Country: None (occurrence: None)
  Receive Date: 20110628
  Receipt Date: 20110621
  Transmission Date: 20111010
  Serious: Yes (Death, Hospitalization)
  Sender: FDA-Public Use
  Company Number: 2009002433

PATIENT
  Age: 61 Year
  Sex: Male
  Weight: 55 kg

DRUGS (6)
  1. ERLOTINIB HYDROCHLORIDE [Suspect]
     Indication: NON-SMALL CELL LUNG CANCER
     Dosage: 150 MG, UID/QD, ORAL
     Route: 048
     Dates: start: 20090414, end: 20090528
  2. CP-751,871 [Suspect]
     Indication: NON-SMALL CELL LUNG CANCER
     Dosage: 110 MG, CYCLOIC, IV, NOS
     Route: 042
     Dates: start: 20090414, end: 20090528
  3. CARBOPLATIN [Concomitant]
  4. SPIRIVA [Concomitant]
  5. GEMZAR [Concomitant]
  6. ISOPTIN [Concomitant]

REACTIONS (2)
  - ACQUIRED TRACHEO-OESOPHAGEAL FISTULA [None]
  - COUGH [None]
